FAERS Safety Report 6244614-5 (Version None)
Quarter: 2009Q2

REPORT INFORMATION
  Report Type: 
  Country: None (occurrence: None)
  Receive Date: 20090625
  Receipt Date: 20090617
  Transmission Date: 20091009
  Serious: Yes (Other)
  Sender: FDA-Public Use
  Company Number: EG-PFIZER INC-2009229417

PATIENT
  Age: 30 Year

DRUGS (1)
  1. DIFLUCAN [Suspect]
     Indication: ENDOCARDITIS
     Route: 042
     Dates: start: 20090610, end: 20090610

REACTIONS (2)
  - HYPERSENSITIVITY [None]
  - INJECTION SITE INFLAMMATION [None]
